FAERS Safety Report 10221386 (Version 1)
Quarter: 2014Q1

REPORT INFORMATION
  Report Type: Spontaneous
  Country: US (occurrence: None)
  Receive Date: 20140306
  Receipt Date: 20140306
  Transmission Date: 20141002
  Serious: Yes (Other)
  Sender: FDA-Public Use
  Company Number: 163-21880-13062590

PATIENT
  Age: 42 Year
  Sex: Female

DRUGS (18)
  1. REVLIMIDE(LENALIDOMIDE)(10 MILLIGRAM, CAPSULES) [Suspect]
     Indication: PLASMA CELL MYELOMA
     Dosage: 10 MG, 21 IN 28 D, PO
     Route: 048
     Dates: start: 20130513
  2. REVLIMIDE(LENALIDOMIDE)(10 MILLIGRAM, CAPSULES) [Suspect]
     Indication: PLASMA CELL MYELOMA
     Dosage: 10 MG, 21 IN 28 D, PO
     Route: 048
  3. EMEND(APREPITANT) [Concomitant]
  4. CALCIUM ACETATE(CALCIUM ACETATE) [Concomitant]
  5. PANTOPRAZOLE(PANTOPRAZOLE) [Concomitant]
  6. ZOLPIDEM(ZOLPIDEM) [Concomitant]
  7. AMLODIPINE BESYLATE(AMLODIPINE BESILATE) [Concomitant]
  8. LIDOCAINE HCL(LIDOCAINE HYDROCHLORIDE)(SOLUTION) [Concomitant]
  9. DEXAMETHASONE(DEXAMETHASONE) [Concomitant]
  10. ONDASETRON(ONDASETRON) [Concomitant]
  11. HYDROCHLOROTHIAZIDE(HYDROCHLOROTHIAZIDE) [Concomitant]
  12. LORAZEPAM(LORAZEPAM) [Concomitant]
  13. ACYCLOVIR(ACICLOVIR) [Concomitant]
  14. MIDODRINE HCL (MIDODRINE HYDROCHLORIDE) [Concomitant]
  15. FLUDROCORTISONE (FLUDROCORTISONE) [Concomitant]
  16. KLOR-CON(POTASSIUM CHLORIDE) [Concomitant]
  17. OXYBUTYNIN(OXYBUTYNIN) [Concomitant]
  18. TOBRADEX(TOBRADEX)(EYE DROPS) [Concomitant]

REACTIONS (3)
  - Skin disorder [None]
  - Dysuria [None]
  - Nasopharyngitis [None]
